FAERS Safety Report 5730374-0 (Version None)
Quarter: 2008Q2

REPORT INFORMATION
  Report Type: 
  Country: None (occurrence: None)
  Receive Date: 20080502
  Receipt Date: 20080424
  Transmission Date: 20081010
  Serious: Yes (Other)
  Sender: FDA-Public Use
  Company Number: 19204

PATIENT
  Age: 31 Year
  Sex: Female

DRUGS (3)
  1. EPIRUBICIN [Suspect]
     Indication: BREAST CANCER
     Dates: start: 20050626, end: 20060116
  2. FLUOROURACIL [Suspect]
     Dates: start: 20050626, end: 20060116
  3. CYCLOPHOSPHAMIDE [Suspect]
     Indication: BREAST CANCER
     Dosage: 600 MG/M2 Q3W IV
     Route: 042
     Dates: start: 20050926, end: 20060116

REACTIONS (3)
  - ALANINE AMINOTRANSFERASE INCREASED [None]
  - MALAISE [None]
  - NAUSEA [None]
